FAERS Safety Report 6173120-1 (Version None)
Quarter: 2009Q2

REPORT INFORMATION
  Report Type: 
  Country: None (occurrence: None)
  Receive Date: 20090430
  Receipt Date: 20090422
  Transmission Date: 20091009
  Serious: Yes (Hospitalization)
  Sender: FDA-Public Use
  Company Number: FR-PFIZER INC-2009201423

PATIENT

DRUGS (10)
  1. TAHOR [Suspect]
     Dosage: 20 MG, 1X/DAY
     Route: 048
     Dates: start: 20090220, end: 20090318
  2. AMLODIPINE BESYLATE [Suspect]
     Dosage: 10 MG, 1X/DAY
     Route: 048
     Dates: start: 20090220, end: 20090306
  3. DIAMICRON [Suspect]
     Dosage: 30 MG, 2X/DAY
     Route: 048
     Dates: start: 20090220, end: 20090320
  4. LASIX [Suspect]
     Dosage: 40 MG, 1X/DAY
     Route: 048
     Dates: start: 20090220, end: 20090320
  5. TENORMIN [Suspect]
     Dosage: 50 MG, 2X/DAY
     Route: 048
     Dates: start: 20090220, end: 20090306
  6. NEXIUM [Suspect]
     Dosage: 40 MG, 1X/DAY
     Route: 048
     Dates: start: 20090220, end: 20090306
  7. ZOLPIDEM [Concomitant]
  8. KARDEGIC [Concomitant]
  9. RISORDAN [Concomitant]
  10. LOVENOX [Concomitant]

REACTIONS (1)
  - STEVENS-JOHNSON SYNDROME [None]
